FAERS Safety Report 25391501 (Version 1)
Quarter: 2025Q2

REPORT INFORMATION
  Report Type: Report from Study
  Country: FR (occurrence: FR)
  Receive Date: 20250603
  Receipt Date: 20250603
  Transmission Date: 20250717
  Serious: Yes (Hospitalization, Other)
  Sender: PURDUE
  Company Number: FR-JNJFOC-20250351840

PATIENT
  Age: 73 Year
  Sex: Male
  Weight: 83.9 kg

DRUGS (9)
  1. MORPHINE SULFATE [Suspect]
     Active Substance: MORPHINE SULFATE
     Indication: Rib fracture
     Route: 065
  2. APALUTAMIDE [Suspect]
     Active Substance: APALUTAMIDE
     Indication: Prostate cancer
     Route: 065
     Dates: start: 20241127
  3. APALUTAMIDE [Suspect]
     Active Substance: APALUTAMIDE
     Route: 065
     Dates: start: 20240329
  4. ALLOPURINOL [Concomitant]
     Active Substance: ALLOPURINOL
     Indication: Product used for unknown indication
     Route: 065
     Dates: start: 2014
  5. TELMISARTAN [Concomitant]
     Active Substance: TELMISARTAN
     Indication: Product used for unknown indication
     Route: 065
     Dates: start: 2016
  6. ROSUVASTATIN [Concomitant]
     Active Substance: ROSUVASTATIN
     Indication: Product used for unknown indication
     Route: 065
     Dates: start: 2014
  7. CLOBETASOL PROPIONATE [Concomitant]
     Active Substance: CLOBETASOL PROPIONATE
     Indication: Rash
     Route: 065
     Dates: start: 20241127
  8. CLOBETASOL PROPIONATE [Concomitant]
     Active Substance: CLOBETASOL PROPIONATE
     Indication: Rash
     Route: 065
     Dates: start: 20240911
  9. OXYCODONE HYDROCHLORIDE [Concomitant]
     Active Substance: OXYCODONE HYDROCHLORIDE
     Indication: Rib fracture
     Route: 065
     Dates: start: 20250116, end: 20250123

REACTIONS (2)
  - Rib fracture [Recovering/Resolving]
  - Confusional state [Recovered/Resolved]

NARRATIVE: CASE EVENT DATE: 20250116
